FAERS Safety Report 4801103-X (Version None)
Quarter: 2005Q4

REPORT INFORMATION
  Report Type: 
  Country: None (occurrence: None)
  Receive Date: 20051011
  Receipt Date: 20050928
  Transmission Date: 20060501
  Serious: Yes (Hospitalization)
  Sender: FDA-Public Use
  Company Number: HQWYE397305JAN05

PATIENT
  Age: 76 Year
  Sex: Male

DRUGS (4)
  1. ROFERON, CONTROL FOR TEMSIROLIMUS             (INTERFERON ALFA, CONTRO [Suspect]
     Indication: RENAL CELL CARCINOMA STAGE UNSPECIFIED
     Dosage: 18 MIU THREE TIMES A WEEK SC
     Route: 058
     Dates: start: 20040915, end: 20041229
  2. MADOPAR               (BENSERAZIDE HYDROCHLORIDE/LEVODOPA) [Concomitant]
  3. KETONAL           (KETOPROFEN) [Concomitant]
  4. CALPEROS           (CALCIUM CARBONATE) [Concomitant]

REACTIONS (13)
  - ALANINE AMINOTRANSFERASE INCREASED [None]
  - ARTERIOSCLEROSIS [None]
  - ASTHENIA [None]
  - BLOOD CALCIUM DECREASED [None]
  - BLOOD UREA INCREASED [None]
  - BRADYPHRENIA [None]
  - CEREBROVASCULAR DISORDER [None]
  - CONCOMITANT DISEASE PROGRESSION [None]
  - EXTRAPYRAMIDAL DISORDER [None]
  - HALLUCINATION [None]
  - MUSCULAR WEAKNESS [None]
  - PARKINSON'S DISEASE [None]
  - PARKINSONISM [None]
